FAERS Safety Report 8140776-3 (Version None)
Quarter: 2012Q1

REPORT INFORMATION
  Report Type: 
  Country: None (occurrence: None)
  Receive Date: 20120216
  Receipt Date: 20120208
  Transmission Date: 20120608
  Serious: Yes (Other)
  Sender: FDA-Public Use
  Company Number: TR-BRISTOL-MYERS SQUIBB COMPANY-16391195

PATIENT
  Age: 52 Year
  Sex: Female

DRUGS (2)
  1. EFFEXOR [Suspect]
     Dosage: CAPS
  2. ABILIFY [Suspect]
     Indication: MAJOR DEPRESSION
     Route: 048

REACTIONS (2)
  - PARKINSONISM [None]
  - RESTLESS LEGS SYNDROME [None]
